FAERS Safety Report 4962286-4 (Version None)
Quarter: 2006Q2

REPORT INFORMATION
  Report Type: 
  Country: None (occurrence: None)
  Receive Date: 20060404
  Receipt Date: 20050513
  Transmission Date: 20061013
  Serious: No
  Sender: FDA-Public Use
  Company Number: US-BRISTOL-MYERS SQUIBB COMPANY-12970737

PATIENT
  Age: 32 Year
  Sex: Female

DRUGS (1)
  1. HYDROXYUREA [Suspect]
     Indication: CHRONIC MYELOID LEUKAEMIA
     Dates: start: 19920101

REACTIONS (2)
  - HYPERSENSITIVITY [None]
  - RASH [None]
